FAERS Safety Report 18354747 (Version 1)
Quarter: 2020Q4

REPORT INFORMATION
  Report Type: Spontaneous
  Country: IT (occurrence: IT)
  Receive Date: 20201007
  Receipt Date: 20201007
  Transmission Date: 20210114
  Serious: Yes (Life-Threatening, Hospitalization, Other)
  Sender: FDA-Public Use
  Company Number: IT-HIKMA PHARMACEUTICALS USA INC.-IT-H14001-20-52246

PATIENT
  Age: 65 Year
  Sex: Female

DRUGS (8)
  1. DOXORUBICIN [Suspect]
     Active Substance: DOXORUBICIN
     Indication: INVASIVE DUCTAL BREAST CARCINOMA
     Route: 065
  2. ANASTROZOLE. [Concomitant]
     Active Substance: ANASTROZOLE
     Indication: HORMONE THERAPY
  3. CYCLOPHOSPHAMIDE. [Concomitant]
     Active Substance: CYCLOPHOSPHAMIDE
     Indication: OESOPHAGEAL CANCER METASTATIC
  4. DOCETAXEL. [Concomitant]
     Active Substance: DOCETAXEL
     Indication: INVASIVE DUCTAL BREAST CARCINOMA
  5. CYCLOPHOSPHAMIDE. [Concomitant]
     Active Substance: CYCLOPHOSPHAMIDE
     Indication: INVASIVE DUCTAL BREAST CARCINOMA
     Route: 065
  6. DOXORUBICIN [Suspect]
     Active Substance: DOXORUBICIN
     Indication: OESOPHAGEAL CANCER METASTATIC
  7. ANASTROZOLE. [Concomitant]
     Active Substance: ANASTROZOLE
     Indication: INVASIVE DUCTAL BREAST CARCINOMA
     Dosage: UNKNOWN
     Route: 065
  8. DOCETAXEL. [Concomitant]
     Active Substance: DOCETAXEL
     Indication: OESOPHAGEAL CANCER METASTATIC
     Route: 065

REACTIONS (9)
  - Right ventricular dysfunction [Recovering/Resolving]
  - Mitral valve incompetence [Recovering/Resolving]
  - Right ventricular dilatation [Recovering/Resolving]
  - Hypotension [Recovering/Resolving]
  - Pulmonary arterial pressure abnormal [Recovering/Resolving]
  - Tricuspid valve incompetence [Recovering/Resolving]
  - Atrial enlargement [Recovering/Resolving]
  - Cardiac failure congestive [Recovering/Resolving]
  - Cardiomyopathy [Recovering/Resolving]
